FAERS Safety Report 23033232 (Version 5)
Quarter: 2024Q1

REPORT INFORMATION
  Report Type: Report from Study
  Country: FR (occurrence: FR)
  Receive Date: 20231005
  Receipt Date: 20240108
  Transmission Date: 20240410
  Serious: Yes (Life-Threatening, Hospitalization, Other)
  Sender: FDA-Public Use
  Company Number: FR-BAXTER-2023BAX031532

PATIENT
  Age: 76 Year
  Sex: Male
  Weight: 76 kg

DRUGS (20)
  1. PREDNISONE [Suspect]
     Active Substance: PREDNISONE
     Indication: Diffuse large B-cell lymphoma
     Dosage: 100 MILLIGRAM, QD, C1-6, D1-5, EVERY 1 DAYS, ONGOING
     Route: 048
     Dates: start: 20230905
  2. VINCRISTINE [Suspect]
     Active Substance: VINCRISTINE
     Indication: Diffuse large B-cell lymphoma
     Dosage: 2 MILLIGRAM, Q3W, ONGOING
     Route: 042
     Dates: start: 20230905
  3. VINCRISTINE [Suspect]
     Active Substance: VINCRISTINE
     Dosage: 2 MILLIGRAM, Q3W, ONGOING
     Route: 042
     Dates: start: 20230906
  4. RITUXIMAB [Suspect]
     Active Substance: RITUXIMAB
     Indication: Diffuse large B-cell lymphoma
     Dosage: 705 MILLIGRAM, Q3W,  ONGOING
     Route: 042
     Dates: start: 20230905
  5. DOXORUBICIN [Suspect]
     Active Substance: DOXORUBICIN
     Indication: Diffuse large B-cell lymphoma
     Dosage: 94 MILLIGRAM, Q3W, ONGOING
     Route: 042
     Dates: start: 20230905
  6. DOXORUBICIN [Suspect]
     Active Substance: DOXORUBICIN
     Dosage: 94 MILLIGRAM, Q3W, ONGOING
     Route: 042
     Dates: start: 20230906
  7. EPCORITAMAB [Suspect]
     Active Substance: EPCORITAMAB
     Indication: Diffuse large B-cell lymphoma
     Dosage: UNK
     Route: 065
  8. CYCLOPHOSPHAMIDE [Suspect]
     Active Substance: CYCLOPHOSPHAMIDE
     Indication: Diffuse large B-cell lymphoma
     Dosage: 1410 MILLIGRAM, Q3W
     Route: 042
     Dates: start: 20230905
  9. CYCLOPHOSPHAMIDE [Suspect]
     Active Substance: CYCLOPHOSPHAMIDE
     Dosage: 1410 MILLIGRAM, Q3W
     Route: 042
     Dates: start: 20230906
  10. LYSINE ACETYLSALICYLATE [Concomitant]
     Active Substance: ASPIRIN DL-LYSINE
     Indication: Thrombosis prophylaxis
     Dosage: 75 MILLIGRAM
     Route: 065
     Dates: start: 2009
  11. BISOPROLOL FUMARATE [Concomitant]
     Active Substance: BISOPROLOL FUMARATE
     Indication: Hypertension
     Dosage: 2.5 MILLIGRAM, QW, 7/WEEKS
     Route: 065
     Dates: start: 200501
  12. GLIMEPIRIDE [Concomitant]
     Active Substance: GLIMEPIRIDE
     Indication: Type 2 diabetes mellitus
     Dosage: UNK
     Route: 065
     Dates: start: 200501
  13. APREPITANT [Concomitant]
     Active Substance: APREPITANT
     Indication: Prophylaxis of nausea and vomiting
     Dosage: 180 MILLIGRAM, TOTAL
     Route: 065
     Dates: start: 20230905, end: 20230907
  14. RAMIPRIL [Concomitant]
     Active Substance: RAMIPRIL
     Indication: Hypertension
     Dosage: 5 MILLIGRAM, QW, 7/WEEKS
     Route: 065
     Dates: start: 200501
  15. AMLODIPINE BESYLATE [Concomitant]
     Active Substance: AMLODIPINE BESYLATE
     Indication: Hypertension
     Dosage: 5 MILLIGRAM, QW, 7/WEEKS
     Route: 065
     Dates: start: 200501
  16. SULFAMETHOXAZOLE [Concomitant]
     Active Substance: SULFAMETHOXAZOLE
     Indication: Infection prophylaxis
     Dosage: UNK, QW, 3/WEEKS
     Route: 065
     Dates: start: 20230905
  17. ACYCLOVIR [Concomitant]
     Active Substance: ACYCLOVIR
     Indication: Infection prophylaxis
     Dosage: 800 MILLIGRAM, QW, 7/WEEKS
     Route: 065
     Dates: start: 20230919
  18. ATORVASTATIN [Concomitant]
     Active Substance: ATORVASTATIN
     Indication: Dyslipidaemia
     Dosage: 40 MILLIGRAM, QW, 7/WEEKS
     Route: 065
     Dates: start: 200501
  19. ATORVASTATIN [Concomitant]
     Active Substance: ATORVASTATIN
     Indication: Type 2 diabetes mellitus
  20. FOLIC ACID [Concomitant]
     Active Substance: FOLIC ACID
     Indication: Bone marrow failure
     Dosage: 25 MILLIGRAM, QW (25 MG, EVERY 1 WEEKS)
     Route: 065
     Dates: start: 20230919

REACTIONS (9)
  - Respiratory distress [Not Recovered/Not Resolved]
  - Pneumonia [Not Recovered/Not Resolved]
  - Pneumonia aspiration [Recovered/Resolved]
  - Infusion related reaction [Recovered/Resolved]
  - Oxygen saturation decreased [Not Recovered/Not Resolved]
  - Stenotrophomonas infection [Recovered/Resolved]
  - Klebsiella infection [Recovered/Resolved]
  - Proteus infection [Recovered/Resolved]
  - Off label use [Unknown]

NARRATIVE: CASE EVENT DATE: 20230905
